FAERS Safety Report 8066587-5 (Version None)
Quarter: 2012Q1

REPORT INFORMATION
  Report Type: 
  Country: None (occurrence: None)
  Receive Date: 20120124
  Receipt Date: 20120117
  Transmission Date: 20120608
  Serious: Yes (Other)
  Sender: FDA-Public Use
  Company Number: PHHY2011BR098777

PATIENT
  Sex: Female

DRUGS (1)
  1. DIOVAN [Suspect]
     Indication: HYPERTENSION
     Dosage: 160 MG, DAILY
     Route: 048
     Dates: start: 20110101

REACTIONS (5)
  - ACUTE MYOCARDIAL INFARCTION [None]
  - BREAST NEOPLASM [None]
  - CORONARY ARTERY OCCLUSION [None]
  - INFARCTION [None]
  - HYPERTENSION [None]
